FAERS Safety Report 7254836-2 (Version None)
Quarter: 2011Q1

REPORT INFORMATION
  Report Type: 
  Country: None (occurrence: None)
  Receive Date: 20110129
  Receipt Date: 20100401
  Transmission Date: 20110831
  Serious: No
  Sender: FDA-Public Use
  Company Number: US-ABBOTT-10P-163-0636077-00

PATIENT
  Sex: Male
  Weight: 77.18 kg

DRUGS (4)
  1. HUMIRA [Suspect]
     Indication: PSORIASIS
     Route: 058
     Dates: start: 20080101
  2. SULFASALAZINE [Concomitant]
     Indication: PSORIASIS
  3. HUMIRA [Suspect]
     Indication: PSORIATIC ARTHROPATHY
  4. SULFASALAZINE [Concomitant]
     Indication: PSORIATIC ARTHROPATHY

REACTIONS (1)
  - PSORIATIC ARTHROPATHY [None]
